FAERS Safety Report 10150859 (Version 1)
Quarter: 2014Q2

REPORT INFORMATION
  Report Type: Spontaneous
  Country: US (occurrence: US)
  Receive Date: 20140502
  Receipt Date: 20140502
  Transmission Date: 20141212
  Serious: Yes (Other)
  Sender: FDA-Public Use
  Company Number: US-ABBVIE-14P-163-1230538-00

PATIENT
  Age: 64 Year
  Sex: Male

DRUGS (1)
  1. ANDROGEL [Suspect]
     Indication: BLOOD TESTOSTERONE DECREASED
     Dates: start: 200910

REACTIONS (5)
  - Cerebrovascular accident [Unknown]
  - Multiple injuries [Unknown]
  - Loss of employment [Unknown]
  - Pain [Unknown]
  - Anxiety [Unknown]
